FAERS Safety Report 5893875-0 (Version None)
Quarter: 2008Q3

REPORT INFORMATION
  Report Type: 
  Country: None (occurrence: None)
  Receive Date: 20080923
  Receipt Date: 20071121
  Transmission Date: 20090109
  Serious: No
  Sender: FDA-Public Use
  Company Number: US-ASTRAZENECA-2007UW26948

PATIENT
  Age: 42 Year
  Sex: Male

DRUGS (4)
  1. SEROQUEL [Suspect]
     Indication: SCHIZOPHRENIA
     Route: 048
  2. ALBUTEROL [Concomitant]
  3. HALDOL [Concomitant]
  4. DEPOCAINE [Concomitant]

REACTIONS (2)
  - AKATHISIA [None]
  - ECZEMA [None]
